FAERS Safety Report 25439240 (Version 1)
Quarter: 2025Q2

REPORT INFORMATION
  Report Type: Spontaneous
  Country: US (occurrence: US)
  Receive Date: 20250616
  Receipt Date: 20250616
  Transmission Date: 20250716
  Serious: No
  Sender: STRIDES
  Company Number: US-STRIDES ARCOLAB LIMITED-2025SP005427

PATIENT
  Age: 62 Year
  Sex: Female
  Weight: 79.365 kg

DRUGS (2)
  1. SODIUM SULFATE, POTASSIUM SULFATE, MAGNESIUM SULFATE [Suspect]
     Active Substance: MAGNESIUM SULFATE\POTASSIUM SULFATE\SODIUM SULFATE
     Indication: Colonoscopy
     Route: 048
     Dates: start: 20250421, end: 20250421
  2. SODIUM SULFATE, POTASSIUM SULFATE, MAGNESIUM SULFATE [Suspect]
     Active Substance: MAGNESIUM SULFATE\POTASSIUM SULFATE\SODIUM SULFATE
     Route: 048
     Dates: start: 20250422, end: 20250422

REACTIONS (4)
  - Reaction to excipient [Recovered/Resolved]
  - Salivary hypersecretion [Unknown]
  - Nausea [Recovered/Resolved]
  - Product after taste [Unknown]

NARRATIVE: CASE EVENT DATE: 20250421
